FAERS Safety Report 9450307 (Version 1)
Quarter: 2013Q3

REPORT INFORMATION
  Report Type: Report from Study
  Country: GB (occurrence: GB)
  Receive Date: 20130809
  Receipt Date: 20130809
  Transmission Date: 20140515
  Serious: Yes (Hospitalization)
  Sender: FDA-Public Use
  Company Number: GB-ASTRAZENECA-2013SE59500

PATIENT
  Age: 22195 Day
  Sex: Male
  Weight: 78 kg

DRUGS (9)
  1. VANDETANIB [Suspect]
     Indication: PANCREATIC CARCINOMA
     Route: 048
     Dates: start: 20130123, end: 20130628
  2. GEMCITABINE [Suspect]
     Indication: PANCREATIC CARCINOMA
     Route: 042
     Dates: start: 20130123
  3. LISINOPRIL [Concomitant]
     Indication: HYPERTENSION
     Route: 048
     Dates: start: 20121123
  4. SITAGLIPTIN [Concomitant]
     Indication: DIABETES MELLITUS
     Route: 048
     Dates: start: 20111228
  5. ORAMORPH [Concomitant]
     Indication: BACK PAIN
     Route: 048
     Dates: start: 20130130
  6. MST [Concomitant]
     Indication: BACK PAIN
     Route: 048
     Dates: start: 20130206
  7. CREON [Concomitant]
     Indication: ENZYME ABNORMALITY
     Route: 048
     Dates: start: 20120615
  8. PREGABALIN [Concomitant]
     Indication: HEADACHE
     Route: 048
     Dates: start: 20100914
  9. LANSOPRAZOLE [Concomitant]
     Indication: GASTROOESOPHAGEAL REFLUX DISEASE
     Route: 048

REACTIONS (1)
  - Renal failure acute [Not Recovered/Not Resolved]
